FAERS Safety Report 5325916-3 (Version None)
Quarter: 2007Q2

REPORT INFORMATION
  Report Type: 
  Country: None (occurrence: None)
  Receive Date: 20070516
  Receipt Date: 20070514
  Transmission Date: 20071010
  Serious: Yes (Death, Life-Threatening, Other)
  Sender: FDA-Public Use
  Company Number: PHNU2006DE04251

PATIENT
  Sex: Male

DRUGS (4)
  1. TEGRETOL [Suspect]
     Indication: SIMPLE PARTIAL SEIZURES
     Dosage: 600 MG, BID
     Route: 048
     Dates: start: 19991201
  2. TEGRETOL [Suspect]
     Indication: EPILEPSY
     Dosage: 100 MG, BID
     Route: 048
  3. EUNERPAN [Suspect]
     Indication: AKATHISIA
     Dosage: 50 MG, TID
     Route: 048
     Dates: start: 20000401
  4. RIVOTRIL [Suspect]
     Dosage: WHEN NEEDED
     Route: 048
     Dates: start: 19991201

REACTIONS (8)
  - AGITATION [None]
  - CONFUSIONAL STATE [None]
  - CONVULSION [None]
  - DEEP VEIN THROMBOSIS [None]
  - DEMENTIA ALZHEIMER'S TYPE [None]
  - PULMONARY EMBOLISM [None]
  - RESTLESSNESS [None]
  - SEDATION [None]
